APPROVED DRUG PRODUCT: MECLOFENAMATE SODIUM
Active Ingredient: MECLOFENAMATE SODIUM
Strength: EQ 100MG BASE
Dosage Form/Route: CAPSULE;ORAL
Application: A071469 | Product #001
Applicant: ANI PHARMACEUTICALS INC
Approved: Apr 15, 1987 | RLD: No | RS: No | Type: DISCN